FAERS Safety Report 4281424-2 (Version None)
Quarter: 2004Q1

REPORT INFORMATION
  Report Type: 
  Country: None (occurrence: None)
  Receive Date: 20040120
  Receipt Date: 20031003
  Transmission Date: 20041129
  Serious: No
  Sender: FDA-Public Use
  Company Number: 2003-09-1735

PATIENT
  Age: 11 Year
  Sex: Male
  Weight: 40 kg

DRUGS (4)
  1. CLARINEX [Suspect]
     Indication: RHINITIS ALLERGIC
     Dosage: 5MG QD ORAL
     Route: 048
     Dates: start: 20030909, end: 20030910
  2. CLARINEX [Suspect]
     Indication: SINUSITIS
     Dosage: 5MG QD ORAL
     Route: 048
     Dates: start: 20030909, end: 20030910
  3. KEFLEX [Suspect]
     Indication: PHARYNGITIS
     Dosage: 1.5 TSP TID
     Dates: start: 20030909, end: 20030919
  4. KEFLEX [Suspect]
     Indication: SINUSITIS
     Dosage: 1.5 TSP TID
     Dates: start: 20030909, end: 20030919

REACTIONS (5)
  - GASTROENTERITIS [None]
  - HEADACHE [None]
  - LETHARGY [None]
  - SOMNOLENCE [None]
  - VOMITING [None]
